FAERS Safety Report 6418570-0 (Version None)
Quarter: 2009Q4

REPORT INFORMATION
  Report Type: 
  Country: None (occurrence: None)
  Receive Date: 20091026
  Receipt Date: 20091013
  Transmission Date: 20100525
  Serious: Yes (Disabling)
  Sender: FDA-Public Use
  Company Number: ADR37182009

PATIENT
  Age: 63 Year
  Sex: Female

DRUGS (2)
  1. SIMVASTATIN [Suspect]
     Indication: HYPERLIPIDAEMIA
     Dosage: 20 MG ;40 MG ORAL
     Route: 048
     Dates: end: 20070718
  2. SIMVASTATIN [Suspect]
     Indication: HYPERLIPIDAEMIA
     Dosage: 20 MG ;40 MG ORAL
     Route: 048
     Dates: start: 20070719, end: 20070822

REACTIONS (2)
  - BACK PAIN [None]
  - HYPERSENSITIVITY [None]
